FAERS Safety Report 21523070 (Version 1)
Quarter: 2022Q4

REPORT INFORMATION
  Report Type: Report from Study
  Country: US (occurrence: US)
  Receive Date: 20221029
  Receipt Date: 20221029
  Transmission Date: 20230113
  Serious: No
  Sender: FDA-Public Use
  Company Number: US-ABBVIE-4131316

PATIENT
  Sex: Female

DRUGS (5)
  1. RINVOQ [Suspect]
     Active Substance: UPADACITINIB
     Indication: Multicentric reticulohistiocytosis
     Dosage: 15 MILLIGRAM
     Route: 048
  2. FORZA [Concomitant]
     Indication: Ovarian cancer
  3. GLUTAMINE [Concomitant]
     Active Substance: GLUTAMINE
     Indication: Gastrointestinal disorder
  4. AVASTIN [Concomitant]
     Active Substance: BEVACIZUMAB
     Indication: Ovarian cancer
     Route: 042
  5. IBUPROFEN [Concomitant]
     Active Substance: IBUPROFEN
     Indication: Pain

REACTIONS (4)
  - Off label use [Unknown]
  - Rash [Unknown]
  - Urticaria [Unknown]
  - Pustule [Unknown]
